FAERS Safety Report 12654579 (Version 11)
Quarter: 2019Q3

REPORT INFORMATION
  Report Type: Report from Study
  Country: DE (occurrence: DE)
  Receive Date: 20160816
  Receipt Date: 20190731
  Transmission Date: 20191004
  Serious: Yes (Other)
  Sender: FDA-Public Use
  Company Number: PHHY2016DE111375

PATIENT
  Age: 57 Year
  Sex: Male
  Weight: 101 kg

DRUGS (1)
  1. VOTRIENT [Suspect]
     Active Substance: PAZOPANIB HYDROCHLORIDE
     Indication: METASTATIC RENAL CELL CARCINOMA
     Dosage: 800 MG, QD
     Route: 048
     Dates: start: 20160714, end: 20160807

REACTIONS (7)
  - Hepatic necrosis [Recovered/Resolved]
  - Nausea [Recovered/Resolved]
  - Liver function test abnormal [Not Recovered/Not Resolved]
  - Jaundice [Unknown]
  - Chromaturia [Recovering/Resolving]
  - Fatigue [Recovering/Resolving]
  - General physical health deterioration [Recovering/Resolving]

NARRATIVE: CASE EVENT DATE: 20160717
